FAERS Safety Report 9409061 (Version 5)
Quarter: 2013Q4

REPORT INFORMATION
  Report Type: Spontaneous
  Country: US (occurrence: None)
  Receive Date: 20130403
  Receipt Date: 20131224
  Transmission Date: 20140711
  Serious: Yes (Other)
  Sender: FDA-Public Use
  Company Number: ADR-2013-00439

PATIENT
  Sex: Female

DRUGS (1)
  1. LIORESAL INTRATHECAL (BACLOFEN INJECTION) [Suspect]
     Indication: CEREBRAL PALSY

REACTIONS (15)
  - Swelling [None]
  - Urinary retention [None]
  - Fungal infection [None]
  - Perineal infection [None]
  - Hypoaesthesia [None]
  - Therapeutic response decreased [None]
  - Pyrexia [None]
  - Fungal infection [None]
  - Blood pressure fluctuation [None]
  - Dizziness [None]
  - Malaise [None]
  - Hypoaesthesia [None]
  - Device difficult to use [None]
  - Feeling abnormal [None]
  - Product substitution issue [None]
